FAERS Safety Report 6755198-7 (Version None)
Quarter: 2010Q2

REPORT INFORMATION
  Report Type: 
  Country: None (occurrence: None)
  Receive Date: 20100604
  Receipt Date: 20100525
  Transmission Date: 20101027
  Serious: No
  Sender: FDA-Public Use
  Company Number: US-BIOGENIDEC-2010BI017768

PATIENT
  Age: 43 Year
  Sex: Female

DRUGS (2)
  1. TYSABRI [Suspect]
     Indication: MULTIPLE SCLEROSIS
     Route: 042
     Dates: start: 20061214, end: 20091101
  2. TYSABRI [Suspect]
     Route: 042
     Dates: start: 20100201

REACTIONS (9)
  - ARTHRALGIA [None]
  - DRUG DELIVERY DEVICE IMPLANTATION [None]
  - HEARING IMPAIRED [None]
  - IMPLANT SITE ERYTHEMA [None]
  - IMPLANT SITE PAIN [None]
  - MULTIPLE SCLEROSIS RELAPSE [None]
  - PAIN IN EXTREMITY [None]
  - STRESS [None]
  - VISUAL IMPAIRMENT [None]
